FAERS Safety Report 5989634-0 (Version None)
Quarter: 2008Q4

REPORT INFORMATION
  Report Type: 
  Country: None (occurrence: None)
  Receive Date: 20081208
  Receipt Date: 20081202
  Transmission Date: 20090506
  Serious: Yes (Other)
  Sender: FDA-Public Use
  Company Number: 2008003140

PATIENT
  Sex: Male

DRUGS (2)
  1. MACUGEN [Suspect]
     Indication: MACULAR DEGENERATION
     Dates: start: 20081101
  2. PANIMYCIN (DIBEKACIN SULFATE) [Concomitant]

REACTIONS (1)
  - CORNEAL EROSION [None]
